FAERS Safety Report 8379264-8 (Version None)
Quarter: 2012Q2

REPORT INFORMATION
  Report Type: 
  Country: None (occurrence: None)
  Receive Date: 20120523
  Receipt Date: 20120511
  Transmission Date: 20120825
  Serious: Yes (Other)
  Sender: FDA-Public Use
  Company Number: US-ELI_LILLY_AND_COMPANY-US201205005248

PATIENT
  Sex: Female

DRUGS (1)
  1. FORTEO [Suspect]
     Indication: OSTEOPOROSIS

REACTIONS (7)
  - CONSTIPATION [None]
  - ABDOMINAL PAIN UPPER [None]
  - ARTHRALGIA [None]
  - NON-CARDIAC CHEST PAIN [None]
  - NAUSEA [None]
  - HIP ARTHROPLASTY [None]
  - PAIN IN EXTREMITY [None]
